FAERS Safety Report 6984135-5 (Version None)
Quarter: 2010Q3

REPORT INFORMATION
  Report Type: 
  Country: None (occurrence: None)
  Receive Date: 20100915
  Receipt Date: 20090528
  Transmission Date: 20110219
  Serious: No
  Sender: FDA-Public Use
  Company Number: US-WYE-H09539309

PATIENT
  Sex: Female
  Weight: 62.65 kg

DRUGS (2)
  1. PRISTIQ [Suspect]
     Route: 048
     Dates: start: 20090101
  2. COUMADIN [Concomitant]

REACTIONS (4)
  - ABNORMAL DREAMS [None]
  - INSOMNIA [None]
  - MEDICATION RESIDUE [None]
  - SOMNOLENCE [None]
